FAERS Safety Report 5597344-7 (Version None)
Quarter: 2007Q4

REPORT INFORMATION
  Report Type: 
  Country: None (occurrence: None)
  Receive Date: 20071221
  Receipt Date: 20071114
  Transmission Date: 20080405
  Serious: No
  Sender: FDA-Public Use
  Company Number: SPV1-2007-04926

PATIENT
  Age: 9 Year
  Sex: Female

DRUGS (2)
  1. VYVANSE [Suspect]
     Dosage: 50 MG
  2. ADDERALL(AMPHETAMINE ASPARTATE, AMPHETAMINE SULFATE, DEXTRAMPHETAMINE [Concomitant]

REACTIONS (2)
  - IRRITABILITY [None]
  - VOMITING [None]
